FAERS Safety Report 17213165 (Version 2)
Quarter: 2020Q1

REPORT INFORMATION
  Report Type: Report from Study
  Country: BD (occurrence: BD)
  Receive Date: 20191230
  Receipt Date: 20200106
  Transmission Date: 20200409
  Serious: Yes (Death)
  Sender: FDA-Public Use
  Company Number: NVSC2019BD081864

PATIENT
  Age: 55 Year
  Weight: 60 kg

DRUGS (2)
  1. SANDOSTATIN [Suspect]
     Active Substance: OCTREOTIDE ACETATE
     Indication: HEPATIC CIRRHOSIS
  2. SANDOSTATIN [Suspect]
     Active Substance: OCTREOTIDE ACETATE
     Indication: OESOPHAGEAL HAEMORRHAGE
     Dosage: 10 DF, QD (AT A TIME)
     Route: 065
     Dates: start: 20191106

REACTIONS (2)
  - Product use in unapproved indication [Unknown]
  - Hepatic cirrhosis [Fatal]

NARRATIVE: CASE EVENT DATE: 20191108
